FAERS Safety Report 4907408-6 (Version None)
Quarter: 2006Q1

REPORT INFORMATION
  Report Type: 
  Country: None (occurrence: None)
  Receive Date: 20060207
  Receipt Date: 20060125
  Transmission Date: 20060701
  Serious: Yes (Hospitalization, Other)
  Sender: FDA-Public Use
  Company Number: 2006013575

PATIENT
  Sex: Male

DRUGS (13)
  1. DETROL LA [Suspect]
     Indication: POLLAKIURIA
     Dosage: (4 MG)
     Dates: start: 20040101
  2. ZOLOFT [Suspect]
     Indication: ANGER
  3. ZOLOFT [Suspect]
     Indication: DEPRESSION
  4. CARDURA [Concomitant]
  5. XANAX [Concomitant]
  6. COREG [Concomitant]
  7. NORVASC [Concomitant]
  8. DIOVAN HCT [Concomitant]
  9. GLUCOTROL XL [Concomitant]
  10. PREDNISONE [Concomitant]
  11. CLINDAMYCIN [Concomitant]
  12. CENTRUM SILVER (ASCORBIC ACID, CALCIUM, MINERALS NOS, RETINOL, TOCOPHE [Concomitant]
  13. ALEVE [Concomitant]

REACTIONS (15)
  - ANGER [None]
  - BALANCE DISORDER [None]
  - CEREBRAL HAEMORRHAGE [None]
  - CONSTIPATION [None]
  - DEATH OF SPOUSE [None]
  - DEPRESSION [None]
  - EYE DISORDER [None]
  - FALL [None]
  - HEAD INJURY [None]
  - LACERATION [None]
  - NERVE COMPRESSION [None]
  - PHARMACEUTICAL PRODUCT COMPLAINT [None]
  - POLLAKIURIA [None]
  - VENOUS OCCLUSION [None]
  - WEIGHT DECREASED [None]
